FAERS Safety Report 12181580 (Version 1)
Quarter: 2016Q1

REPORT INFORMATION
  Report Type: Spontaneous
  Country: GB (occurrence: GB)
  Receive Date: 20160315
  Receipt Date: 20160315
  Transmission Date: 20160526
  Serious: Yes (Hospitalization)
  Sender: FDA-Public Use
  Company Number: GB-ASTRAZENECA-2016SE25602

PATIENT
  Age: 72 Year
  Sex: Male

DRUGS (12)
  1. SEROQUEL [Suspect]
     Active Substance: QUETIAPINE FUMARATE
     Indication: DEMENTIA
     Route: 048
     Dates: start: 200704
  2. CARBAMAZEPINE. [Concomitant]
     Active Substance: CARBAMAZEPINE
  3. SEROQUEL [Suspect]
     Active Substance: QUETIAPINE FUMARATE
     Indication: BIPOLAR DISORDER
     Route: 048
     Dates: start: 200704
  4. MIRTAZAPINE. [Concomitant]
     Active Substance: MIRTAZAPINE
  5. LISINOPRIL. [Concomitant]
     Active Substance: LISINOPRIL
  6. ESCITALOPRAM [Concomitant]
     Active Substance: ESCITALOPRAM OXALATE
  7. SEROQUEL [Suspect]
     Active Substance: QUETIAPINE FUMARATE
     Indication: BIPOLAR DISORDER
     Route: 048
     Dates: start: 200704
  8. LOFEPRAMINE [Concomitant]
     Active Substance: LOFEPRAMINE
  9. SEROQUEL [Suspect]
     Active Substance: QUETIAPINE FUMARATE
     Indication: DEMENTIA
     Route: 048
     Dates: start: 200704
  10. L-TRYPLOPHAN [Concomitant]
  11. METFORMIN [Concomitant]
     Active Substance: METFORMIN HYDROCHLORIDE
  12. RISPERIDONE. [Concomitant]
     Active Substance: RISPERIDONE
     Indication: AKATHISIA

REACTIONS (22)
  - Haematuria [Unknown]
  - Adverse event [Unknown]
  - Hypertension [Unknown]
  - Granulomatous liver disease [Unknown]
  - Off label use [Unknown]
  - Depression [Unknown]
  - Hyperhidrosis [Unknown]
  - Feeling abnormal [Unknown]
  - Somnolence [Unknown]
  - Agitation [Unknown]
  - Constipation [Unknown]
  - Akathisia [Unknown]
  - Gastroenteritis [Unknown]
  - Urinary tract infection [Unknown]
  - Delusion [Unknown]
  - Prostatomegaly [Unknown]
  - Blister [Unknown]
  - Gait disturbance [Unknown]
  - Product use issue [Unknown]
  - Renal failure [Unknown]
  - Gastrointestinal hypomotility [Unknown]
  - Tachycardia [Unknown]

NARRATIVE: CASE EVENT DATE: 2013
